FAERS Safety Report 6727635-5 (Version None)
Quarter: 2010Q2

REPORT INFORMATION
  Report Type: 
  Country: None (occurrence: None)
  Receive Date: 20100517
  Receipt Date: 20100505
  Transmission Date: 20101027
  Serious: Yes (Hospitalization)
  Sender: FDA-Public Use
  Company Number: PHEH2010US03346

PATIENT
  Sex: Female

DRUGS (3)
  1. RECLAST [Suspect]
     Indication: OSTEOPOROSIS
     Dosage: 5 MG
     Route: 042
     Dates: start: 20100319
  2. ACE INHIBITOR NOS [Concomitant]
  3. CALCIUM [Concomitant]

REACTIONS (8)
  - ABDOMINAL PAIN [None]
  - ANURIA [None]
  - DEHYDRATION [None]
  - HYPERSENSITIVITY [None]
  - LETHARGY [None]
  - NAUSEA [None]
  - PYREXIA [None]
  - VOMITING [None]
